FAERS Safety Report 10153183 (Version 1)
Quarter: 2014Q2

REPORT INFORMATION
  Report Type: Spontaneous
  Country: US (occurrence: US)
  Receive Date: 20140505
  Receipt Date: 20140505
  Transmission Date: 20141212
  Serious: No
  Sender: FDA-Public Use
  Company Number: US-GILEAD-2014-0101476

PATIENT
  Age: 63 Year
  Sex: Female

DRUGS (13)
  1. LETAIRIS [Suspect]
     Indication: PULMONARY HYPERTENSION
     Dosage: 5 MG, QD
     Route: 065
     Dates: start: 20120920
  2. LETAIRIS [Suspect]
     Indication: SYSTEMIC SCLEROSIS
  3. CELLCEPT                           /01275102/ [Concomitant]
  4. FUROSEMIDE [Concomitant]
  5. RIOCIGUAT [Concomitant]
  6. POTASSIUM CHLORIDE [Concomitant]
  7. COZAAR [Concomitant]
  8. ASPIRIN [Concomitant]
  9. NORVASC [Concomitant]
  10. FISH OIL [Concomitant]
  11. NEXIUM                             /01479302/ [Concomitant]
  12. FLAXSEED OIL [Concomitant]
  13. CALCIUM [Concomitant]

REACTIONS (2)
  - Oxygen supplementation [Unknown]
  - Nasal congestion [Not Recovered/Not Resolved]
